FAERS Safety Report 4456309-9 (Version None)
Quarter: 2004Q3

REPORT INFORMATION
  Report Type: 
  Country: None (occurrence: None)
  Receive Date: 20040917
  Receipt Date: 20040813
  Transmission Date: 20050211
  Serious: Yes (Disabling, Other)
  Sender: FDA-Public Use
  Company Number: US_021190057

PATIENT
  Sex: Female

DRUGS (4)
  1. HUMALOG [Suspect]
     Indication: DIABETES MELLITUS INSULIN-DEPENDENT
  2. HUMULIN N [Suspect]
     Indication: DIABETES MELLITUS INSULIN-DEPENDENT
     Dosage: 22 U DAY
     Dates: start: 19860201
  3. HUMULIN R [Suspect]
     Indication: DIABETES MELLITUS INSULIN-DEPENDENT
     Dosage: 6 U/2 DAY
     Dates: start: 19860201
  4. INSULIN [Suspect]

REACTIONS (16)
  - ASTHENIA [None]
  - BLOOD GLUCOSE INCREASED [None]
  - DEPRESSION [None]
  - DIABETES MELLITUS INADEQUATE CONTROL [None]
  - GLYCOSYLATED HAEMOGLOBIN INCREASED [None]
  - HYPOGLYCAEMIA UNAWARENESS [None]
  - IMPAIRED DRIVING ABILITY [None]
  - LIVER DISORDER [None]
  - LOSS OF CONSCIOUSNESS [None]
  - MENTAL DISORDER [None]
  - MOOD SWINGS [None]
  - NEOPLASM [None]
  - RENAL IMPAIRMENT [None]
  - ROAD TRAFFIC ACCIDENT [None]
  - SHOCK HYPOGLYCAEMIC [None]
  - WEIGHT INCREASED [None]
